FAERS Safety Report 6850836-2 (Version None)
Quarter: 2010Q3

REPORT INFORMATION
  Report Type: 
  Country: None (occurrence: None)
  Receive Date: 20100716
  Receipt Date: 20071023
  Transmission Date: 20110219
  Serious: No
  Sender: FDA-Public Use
  Company Number: US-PFIZER INC-2007090438

PATIENT
  Sex: Female
  Weight: 56.2 kg

DRUGS (5)
  1. CHANTIX [Suspect]
     Indication: SMOKING CESSATION THERAPY
     Route: 048
     Dates: start: 20070816
  2. MOTRIN [Concomitant]
     Indication: ARTHRITIS
     Route: 048
  3. PREMARIN [Concomitant]
     Route: 048
  4. LORAZEPAM [Concomitant]
     Indication: ABDOMINAL DISCOMFORT
     Route: 048
  5. LEXAPRO [Concomitant]
     Route: 048

REACTIONS (3)
  - CHEST DISCOMFORT [None]
  - PALPITATIONS [None]
  - RESPIRATORY DISORDER [None]
